FAERS Safety Report 15566873 (Version 2)
Quarter: 2018Q4

REPORT INFORMATION
  Report Type: Spontaneous
  Country: FR (occurrence: FR)
  Receive Date: 20181030
  Receipt Date: 20181105
  Transmission Date: 20190205
  Serious: Yes (Death, Hospitalization)
  Sender: FDA-Public Use
  Company Number: FR-PROVELL PHARMACEUTICALS-2058219

PATIENT
  Age: 71 Year
  Sex: Female

DRUGS (10)
  1. SERESTA [Concomitant]
     Active Substance: OXAZEPAM
  2. CORTANCYL [Concomitant]
     Active Substance: PREDNISONE
  3. BISOPROLOL [Concomitant]
     Active Substance: BISOPROLOL
  4. ELIQUIS [Concomitant]
     Active Substance: APIXABAN
  5. EUTHYROX [Suspect]
     Active Substance: LEVOTHYROXINE SODIUM
     Indication: HYPOTHYROIDISM
  6. DONEPEZIL BASE [Suspect]
     Active Substance: DONEPEZIL
     Dates: start: 20151214, end: 201805
  7. MODOPAR [Concomitant]
     Active Substance: BENSERAZIDE HYDROCHLORIDE\LEVODOPA
  8. MOVICOL [Concomitant]
     Active Substance: POLYETHYLENE GLYCOL 3350\POTASSIUM CHLORIDE\SODIUM BICARBONATE\SODIUM CHLORIDE
  9. RISEDRONATE [Concomitant]
     Active Substance: RISEDRONATE SODIUM
  10. LEPONEX [Concomitant]
     Active Substance: CLOZAPINE

REACTIONS (1)
  - Dementia [Fatal]

NARRATIVE: CASE EVENT DATE: 201805
